FAERS Safety Report 13997954 (Version 2)
Quarter: 2017Q4

REPORT INFORMATION
  Report Type: Spontaneous
  Country: FR (occurrence: FR)
  Receive Date: 20170921
  Receipt Date: 20171009
  Transmission Date: 20180321
  Serious: Yes (Other)
  Sender: FDA-Public Use
  Company Number: FR-MERCK KGAA-2027171

PATIENT
  Age: 45 Year
  Sex: Female

DRUGS (1)
  1. NOVOTHYROX [Suspect]
     Active Substance: LEVOTHYROXINE SODIUM
     Indication: HYPOTHYROIDISM
     Route: 048
     Dates: start: 201704

REACTIONS (6)
  - Stress [Not Recovered/Not Resolved]
  - Insomnia [Not Recovered/Not Resolved]
  - Tachycardia [Not Recovered/Not Resolved]
  - Apathy [Not Recovered/Not Resolved]
  - Headache [Not Recovered/Not Resolved]
  - Product formulation issue [Not Recovered/Not Resolved]

NARRATIVE: CASE EVENT DATE: 2017
